FAERS Safety Report 8635531 (Version 3)
Quarter: 2012Q4

REPORT INFORMATION
  Report Type: 
  Country: US (occurrence: US)
  Receive Date: 20120626
  Receipt Date: 20121106
  Transmission Date: 20130627
  Serious: Yes (Hospitalization, Other)
  Sender: FDA-Public Use
  Company Number: US-GLAXOSMITHKLINE-A0981557A

PATIENT
  Age: 73 Year
  Sex: Female

DRUGS (7)
  1. PROMACTA [Suspect]
     Indication: PLATELET COUNT DECREASED
     Dosage: 25MG Per day
     Route: 048
     Dates: start: 20111121, end: 20120618
  2. ASPIRIN [Suspect]
     Indication: PRODUCT USED FOR UNKNOWN INDICATION
     Route: 065
  3. STEROIDS [Suspect]
     Indication: PLATELET COUNT DECREASED
     Route: 048
  4. ATENOLOL [Concomitant]
  5. CRESTOR [Concomitant]
  6. PANTOPRAZOLE [Concomitant]
  7. FISH OIL [Concomitant]

REACTIONS (5)
  - Gastric haemorrhage [Recovered/Resolved]
  - Platelet count decreased [Recovered/Resolved]
  - Blood blister [Recovered/Resolved]
  - Contusion [Recovered/Resolved]
  - Drug ineffective [Unknown]
